FAERS Safety Report 5971086 (Version 24)
Quarter: 2014Q1

REPORT INFORMATION
  Report Type: Spontaneous
  Country: US (occurrence: US)
  Receive Date: 20060127
  Receipt Date: 20140115
  Transmission Date: 20141002
  Serious: Yes (Other)
  Sender: FDA-Public Use
  Company Number: PHEH2006US01252

PATIENT
  Age: 52 Year
  Sex: Male
  Weight: 84.81 kg

DRUGS (37)
  1. ZOMETA [Suspect]
     Indication: METASTASES TO BONE
     Dosage: 4 MG, QMO
  2. AREDIA [Suspect]
  3. COUMADIN [Concomitant]
  4. ZOLOFT [Concomitant]
     Dosage: 50 MG, QHS
  5. ASPIRIN [Concomitant]
     Dosage: 81 MG,
  6. MULTIVITAMIN ^LAPPE^ [Concomitant]
  7. VITAMIN C [Concomitant]
  8. VITAMIN B [Concomitant]
  9. IRON [Concomitant]
  10. CALCIUM [Concomitant]
  11. LOVENOX [Concomitant]
  12. TYLENOL [Concomitant]
  13. ATIVAN [Concomitant]
  14. CELEBREX [Concomitant]
  15. PREDNISONE [Concomitant]
  16. COUMADIN ^BOOTS^ [Concomitant]
  17. ANTINEOPLASTIC AGENTS [Concomitant]
     Indication: PLASMA CELL MYELOMA
     Dates: start: 2000, end: 2000
  18. EPOGEN [Concomitant]
     Dates: start: 1999
  19. PENICILLIN VK [Concomitant]
  20. TYLENOL W/CODEINE NO. 3 [Concomitant]
  21. CLINDAMYCIN [Concomitant]
  22. IBUPROFEN [Concomitant]
  23. CIPROFLOXACIN [Concomitant]
  24. DEXAMETHASONE [Concomitant]
  25. HYDROCODONE [Concomitant]
  26. CEPHALEXIN [Concomitant]
  27. PROCRIT                            /00909301/ [Concomitant]
  28. PROCHLORPERAZINE [Concomitant]
  29. LEVAQUIN [Concomitant]
  30. CIPRODEX [Concomitant]
  31. UROXATRAL [Concomitant]
  32. ZOLOFT (SERTRALINE HYDROCHLORIDE) [Concomitant]
     Dosage: 100 MG, QD
  33. VITAMINS [Concomitant]
  34. ACIPHEX [Concomitant]
     Dosage: 20 MG, QD
  35. CARAFATE [Concomitant]
     Dosage: 2 TSP, 3-4 TIMES DAILY
  36. LIPOGEN [Concomitant]
  37. RESTORIL [Concomitant]

REACTIONS (112)
  - Lacunar infarction [Unknown]
  - Encephalomalacia [Unknown]
  - Oedema [Unknown]
  - Metastatic neoplasm [Unknown]
  - Extraskeletal ossification [Unknown]
  - Cerebral infarction [Unknown]
  - Cerebral atrophy [Unknown]
  - Ischaemia [Unknown]
  - Osteonecrosis of jaw [Unknown]
  - Bone disorder [Unknown]
  - Pain [Unknown]
  - Impaired healing [Unknown]
  - Infection [Unknown]
  - Excessive granulation tissue [Unknown]
  - Fracture [Unknown]
  - Inflammation [Unknown]
  - Oral infection [Recovering/Resolving]
  - Pain in jaw [Unknown]
  - Osteitis [Unknown]
  - Abscess oral [Recovering/Resolving]
  - Depression [Unknown]
  - Eye haemorrhage [Unknown]
  - Cataract [Unknown]
  - Fibula fracture [Unknown]
  - Osteoporosis [Unknown]
  - Bone lesion [Unknown]
  - Osteopenia [Unknown]
  - Platelet count decreased [Unknown]
  - Insomnia [Unknown]
  - Paraesthesia [Unknown]
  - Muscle spasms [Unknown]
  - Diplopia [Unknown]
  - Subcutaneous abscess [Unknown]
  - Fatigue [Unknown]
  - Musculoskeletal pain [Unknown]
  - Intervertebral disc disorder [Unknown]
  - Blood calcium decreased [Unknown]
  - Blood glucose increased [Unknown]
  - Blood immunoglobulin A decreased [Unknown]
  - Blood immunoglobulin M decreased [Unknown]
  - Herpes virus infection [Unknown]
  - Meningioma [Unknown]
  - Hiatus hernia [Unknown]
  - Gastritis erosive [Unknown]
  - Spinal osteoarthritis [Unknown]
  - Osteomyelitis [Unknown]
  - Cerebrovascular accident [Unknown]
  - Plasmacytoma [Unknown]
  - Hip fracture [Unknown]
  - Pancytopenia [Unknown]
  - Mucosal inflammation [Unknown]
  - Atelectasis [Unknown]
  - Pulmonary congestion [Unknown]
  - Pleural effusion [Unknown]
  - Pneumonia [Unknown]
  - Oral pain [Unknown]
  - Oropharyngeal pain [Unknown]
  - Dysphagia [Unknown]
  - Oral herpes [Unknown]
  - Febrile neutropenia [Unknown]
  - Staphylococcal bacteraemia [Unknown]
  - Diverticulum [Unknown]
  - Gastritis [Unknown]
  - Lactose intolerance [Unknown]
  - Abdominal distension [Unknown]
  - Flatulence [Unknown]
  - Abdominal discomfort [Unknown]
  - Gastrooesophageal reflux disease [Unknown]
  - Dyspepsia [Unknown]
  - Eructation [Unknown]
  - Constipation [Unknown]
  - Erosive oesophagitis [Unknown]
  - Nausea [Unknown]
  - Cough [Unknown]
  - Benign prostatic hyperplasia [Unknown]
  - Erectile dysfunction [Unknown]
  - Ejaculation disorder [Unknown]
  - Muscle atrophy [Unknown]
  - Umbilical hernia, obstructive [Unknown]
  - Intervertebral disc degeneration [Unknown]
  - Joint effusion [Unknown]
  - Stress fracture [Unknown]
  - Bladder obstruction [Unknown]
  - Tendon disorder [Unknown]
  - Back pain [Recovering/Resolving]
  - Musculoskeletal stiffness [Unknown]
  - Chest pain [Unknown]
  - Dizziness [Unknown]
  - Exostosis [Unknown]
  - Gliosis [Unknown]
  - Large intestine polyp [Unknown]
  - Rectal haemorrhage [Unknown]
  - Blister [Recovered/Resolved]
  - Psychotic disorder [Unknown]
  - Mental status changes [Unknown]
  - Altered state of consciousness [Unknown]
  - Confusional state [Recovered/Resolved]
  - Pollakiuria [Unknown]
  - Arthralgia [Unknown]
  - Femur fracture [Unknown]
  - Haematuria [Unknown]
  - Dementia [Unknown]
  - Dyspnoea [Unknown]
  - Epistaxis [Unknown]
  - Contusion [Unknown]
  - Sinusitis [Unknown]
  - Erythema [Unknown]
  - Nasal oedema [Unknown]
  - Haemoptysis [Unknown]
  - Disability [Unknown]
  - Anxiety [Unknown]
  - Anhedonia [Unknown]
